FAERS Safety Report 9690243 (Version 1)
Quarter: 2013Q4

REPORT INFORMATION
  Report Type: Spontaneous
  Country: US (occurrence: None)
  Receive Date: 20131114
  Receipt Date: 20131114
  Transmission Date: 20140711
  Serious: No
  Sender: FDA-Public Use
  Company Number: None

PATIENT
  Age: 50 Year
  Sex: Female
  Weight: 81.65 kg

DRUGS (1)
  1. ALBUTEROL SULFATE [Suspect]
     Indication: DYSPNOEA
     Dosage: 0.083 TWICE DAILY TAKEN BY MOUTH
     Route: 048
     Dates: start: 20130802, end: 20131017

REACTIONS (1)
  - Dyspnoea [None]
